FAERS Safety Report 15235116 (Version 1)
Quarter: 2018Q3

REPORT INFORMATION
  Report Type: Spontaneous
  Country: US (occurrence: US)
  Receive Date: 20180803
  Receipt Date: 20180803
  Transmission Date: 20181010
  Serious: No
  Sender: FDA-Public Use
  Company Number: US-ALKEM LABORATORIES LIMITED-IN-ALKEM-2017-00507

PATIENT
  Sex: Female

DRUGS (1)
  1. CEFUROXIME AXETIL. [Suspect]
     Active Substance: CEFUROXIME AXETIL
     Indication: URINARY TRACT INFECTION
     Dosage: 500 MG, BID
     Route: 065

REACTIONS (1)
  - Back pain [Unknown]
